FAERS Safety Report 12399473 (Version 1)
Quarter: 2016Q2

REPORT INFORMATION
  Report Type: Report from Study
  Country: DE (occurrence: DE)
  Receive Date: 20160524
  Receipt Date: 20160524
  Transmission Date: 20160815
  Serious: Yes (Hospitalization)
  Sender: FDA-Public Use
  Company Number: DE-ABBVIE-16K-062-1603672-00

PATIENT
  Age: 76 Year
  Sex: Female

DRUGS (9)
  1. ALLOPURINOL. [Concomitant]
     Active Substance: ALLOPURINOL
     Indication: PRODUCT USED FOR UNKNOWN INDICATION
  2. NOVAMINSULFON [Concomitant]
     Active Substance: METAMIZOLE
     Indication: PRODUCT USED FOR UNKNOWN INDICATION
  3. RAMICLAIR [Concomitant]
     Indication: PRODUCT USED FOR UNKNOWN INDICATION
  4. QUENSYL [Concomitant]
     Active Substance: HYDROXYCHLOROQUINE
     Indication: PRODUCT USED FOR UNKNOWN INDICATION
  5. DECORTIN [Concomitant]
     Active Substance: PREDNISONE
     Indication: PRODUCT USED FOR UNKNOWN INDICATION
  6. HUMIRA [Suspect]
     Active Substance: ADALIMUMAB
     Indication: RHEUMATOID ARTHRITIS
     Route: 058
     Dates: start: 20060918
  7. NIFEDIPIN [Concomitant]
     Active Substance: NIFEDIPINE
     Indication: PRODUCT USED FOR UNKNOWN INDICATION
  8. CELIPROLOL [Concomitant]
     Active Substance: CELIPROLOL
     Indication: PRODUCT USED FOR UNKNOWN INDICATION
  9. TOREM [Concomitant]
     Active Substance: TORSEMIDE
     Indication: PRODUCT USED FOR UNKNOWN INDICATION

REACTIONS (2)
  - Crepitations [Not Recovered/Not Resolved]
  - Arthropathy [Not Recovered/Not Resolved]

NARRATIVE: CASE EVENT DATE: 201512
